FAERS Safety Report 17723611 (Version 1)
Quarter: 2020Q2

REPORT INFORMATION
  Report Type: Spontaneous
  Country: SG (occurrence: SG)
  Receive Date: 20200429
  Receipt Date: 20200429
  Transmission Date: 20200714
  Serious: Yes (Hospitalization, Other)
  Sender: FDA-Public Use
  Company Number: SG-TEVA-2020-SG-1227958

PATIENT
  Age: 82 Year
  Sex: Male

DRUGS (3)
  1. PREDNISOLONE. [Suspect]
     Active Substance: PREDNISOLONE
     Indication: ADRENAL INSUFFICIENCY
     Dosage: 5 MILLIGRAM DAILY;
     Route: 065
     Dates: start: 201906, end: 201912
  2. HYDROCORTISONE. [Suspect]
     Active Substance: HYDROCORTISONE
     Indication: ADRENAL INSUFFICIENCY
     Dosage: 20 MG ONCE EVERY MORNING, 10 MG ONCE EVERY EVENING
     Route: 065
     Dates: start: 20160316
  3. HYDROCORTISONE. [Suspect]
     Active Substance: HYDROCORTISONE
     Dosage: 10 MILLIGRAM DAILY;
     Route: 065
     Dates: end: 201912

REACTIONS (13)
  - Encephalitis [Unknown]
  - Psoas abscess [Unknown]
  - Meningitis bacterial [Recovered/Resolved]
  - Generalised tonic-clonic seizure [Recovered/Resolved]
  - CNS ventriculitis [Recovered/Resolved]
  - Myositis [Unknown]
  - Cellulitis [Unknown]
  - Discontinued product administered [Unknown]
  - Pneumonia [Unknown]
  - Pericardial effusion [Unknown]
  - Enterococcal infection [Recovered/Resolved]
  - Intervertebral discitis [Unknown]
  - Strongyloidiasis [Recovered/Resolved]

NARRATIVE: CASE EVENT DATE: 201909
